FAERS Safety Report 15122981 (Version 3)
Quarter: 2019Q1

REPORT INFORMATION
  Report Type: Report from Study
  Country: US (occurrence: US)
  Receive Date: 20180709
  Receipt Date: 20190222
  Transmission Date: 20190417
  Serious: Yes (Hospitalization)
  Sender: FDA-Public Use
  Company Number: US-ACTELION-A-NJ2018-175035

PATIENT
  Age: 58 Year
  Sex: Female
  Weight: 116.1 kg

DRUGS (4)
  1. UPTRAVI [Suspect]
     Active Substance: SELEXIPAG
     Indication: PULMONARY ARTERIAL HYPERTENSION
     Dosage: 1600 MCG, BID
     Route: 048
  2. WARFARIN [Concomitant]
     Active Substance: WARFARIN
  3. TRACLEER [Concomitant]
     Active Substance: BOSENTAN
     Indication: PULMONARY ARTERIAL HYPERTENSION
  4. NIFEDIPINE. [Concomitant]
     Active Substance: NIFEDIPINE

REACTIONS (11)
  - Asthenia [Unknown]
  - Blood iron decreased [Unknown]
  - Dyspnoea [Unknown]
  - Knee operation [Unknown]
  - Cough [Unknown]
  - Bronchitis [Unknown]
  - Fatigue [Unknown]
  - Decreased appetite [Unknown]
  - Knee arthroplasty [Unknown]
  - Joint injury [Unknown]
  - Fall [Unknown]
